FAERS Safety Report 4878316-4 (Version None)
Quarter: 2006Q1

REPORT INFORMATION
  Report Type: 
  Country: None (occurrence: None)
  Receive Date: 20060111
  Receipt Date: 20050408
  Transmission Date: 20060701
  Serious: Yes (Hospitalization, Disabling)
  Sender: FDA-Public Use
  Company Number: US-MERCK-0504USA01633

PATIENT
  Age: 53 Year
  Sex: Male
  Weight: 83 kg

DRUGS (2)
  1. VIOXX [Suspect]
     Indication: PAIN MANAGEMENT
     Route: 048
     Dates: start: 20011101, end: 20021116
  2. ASPIRIN [Concomitant]
     Route: 065
     Dates: start: 19930101

REACTIONS (3)
  - BACK INJURY [None]
  - ISCHAEMIC STROKE [None]
  - MYOCARDIAL INFARCTION [None]
